FAERS Safety Report 18766178 (Version 3)
Quarter: 2021Q1

REPORT INFORMATION
  Report Type: Report from Study
  Country: None (occurrence: US)
  Receive Date: 20210121
  Receipt Date: 20210301
  Transmission Date: 20210419
  Serious: Yes (Hospitalization, Other)
  Sender: FDA-Public Use
  Company Number: US-ABBVIE-20K-163-3681879-00

PATIENT
  Age: 53 Year
  Sex: Female
  Weight: 51.76 kg

DRUGS (2)
  1. HUMIRA [Suspect]
     Active Substance: ADALIMUMAB
     Route: 058
     Dates: start: 20200811, end: 20201103
  2. HUMIRA [Suspect]
     Active Substance: ADALIMUMAB
     Indication: RHEUMATOID ARTHRITIS
     Route: 058
     Dates: start: 2014

REACTIONS (8)
  - Pulmonary hypertension [Not Recovered/Not Resolved]
  - Cardiac failure [Unknown]
  - Decreased appetite [Recovering/Resolving]
  - Asymptomatic COVID-19 [Recovered/Resolved]
  - Pain [Recovering/Resolving]
  - Weight decreased [Not Recovered/Not Resolved]
  - Respiratory failure [Not Recovered/Not Resolved]
  - Arthritis [Not Recovered/Not Resolved]

NARRATIVE: CASE EVENT DATE: 2014
